FAERS Safety Report 6070935-5 (Version None)
Quarter: 2009Q1

REPORT INFORMATION
  Report Type: 
  Country: None (occurrence: None)
  Receive Date: 20090209
  Receipt Date: 20090206
  Transmission Date: 20090719
  Serious: Yes (Death, Other)
  Sender: FDA-Public Use
  Company Number: US-RB-007048-08

PATIENT
  Age: 39 Year
  Sex: Female

DRUGS (1)
  1. SUBUTEX [Suspect]
     Route: 060
     Dates: start: 20081118, end: 20081201

REACTIONS (2)
  - COMPLETED SUICIDE [None]
  - HYPERHIDROSIS [None]
